FAERS Safety Report 24114526 (Version 1)
Quarter: 2024Q3

REPORT INFORMATION
  Report Type: Spontaneous
  Country: US (occurrence: US)
  Receive Date: 20240720
  Receipt Date: 20240720
  Transmission Date: 20241016
  Serious: No
  Sender: BAYER
  Company Number: US-BAYER-2024A101558

PATIENT
  Age: 80 Year
  Sex: Male

DRUGS (1)
  1. ASTEPRO [Suspect]
     Active Substance: AZELASTINE HYDROCHLORIDE
     Dosage: 1 SPRAY TWICE A DAY
     Dates: start: 202311, end: 202404

REACTIONS (4)
  - Increased viscosity of upper respiratory secretion [Recovering/Resolving]
  - Nasal crusting [None]
  - Epistaxis [None]
  - Skin exfoliation [Recovering/Resolving]
